FAERS Safety Report 9827223 (Version 2)
Quarter: 2014Q1

REPORT INFORMATION
  Report Type: Spontaneous
  Country: US (occurrence: US)
  Receive Date: 20140117
  Receipt Date: 20140117
  Transmission Date: 20141002
  Serious: Yes (Other)
  Sender: FDA-Public Use
  Company Number: US-BRISTOL-MYERS SQUIBB COMPANY-19538354

PATIENT
  Age: 55 Year
  Sex: Female

DRUGS (10)
  1. YERVOY [Suspect]
     Indication: METASTATIC MALIGNANT MELANOMA
     Dosage: 2 DOSE AROUND SEP4?29JUN13?21AUG13?21SEP13
     Route: 042
  2. BENICAR [Concomitant]
     Route: 048
  3. COLACE [Concomitant]
     Route: 048
  4. DURAGESIC [Concomitant]
     Dosage: 75 PATCH 72 HR 75 MCG/HR - APPLY 1 TRANSDERMAL FOR 3 DAYS
     Route: 062
  5. HYDROCODONE + ACETAMINOPHEN [Concomitant]
     Dosage: 10-325 MG
     Route: 048
  6. LEVOTHYROXINE SODIUM [Concomitant]
     Route: 048
  7. MAGNESIUM OXIDE [Concomitant]
     Route: 048
  8. ONDANSETRON HCL [Concomitant]
     Route: 048
  9. PROMETHAZINE HCL [Concomitant]
     Dosage: 1PER2TO4HR
     Route: 048
  10. QUETIAPINE FUMARATE [Concomitant]
     Route: 048

REACTIONS (4)
  - Malignant neoplasm progression [Unknown]
  - Rash [Recovered/Resolved]
  - Pruritus [Recovered/Resolved]
  - Diarrhoea [Recovered/Resolved]
